FAERS Safety Report 10977435 (Version 1)
Quarter: 2015Q2

REPORT INFORMATION
  Report Type: Spontaneous
  Country: US (occurrence: None)
  Receive Date: 20150401
  Receipt Date: 20150401
  Transmission Date: 20150821
  Serious: No
  Sender: FDA-Public Use
  Company Number: None

PATIENT
  Age: 72 Year
  Sex: Female

DRUGS (6)
  1. PRAVASTATIN SODIUM. [Suspect]
     Active Substance: PRAVASTATIN SODIUM
     Indication: BLOOD CHOLESTEROL
     Dosage: 1 PILL
     Route: 048
     Dates: start: 20141106, end: 20150215
  2. BINFANTIS [Concomitant]
  3. ALIGN (PROBIOTIC) [Concomitant]
  4. SERTRALINE [Concomitant]
     Active Substance: SERTRALINE HYDROCHLORIDE
  5. METOPROLOL [Concomitant]
     Active Substance: METOPROLOL
  6. BAYER ASPIRIN [Concomitant]
     Active Substance: ASPIRIN

REACTIONS (3)
  - Dry skin [None]
  - Skin exfoliation [None]
  - Alopecia [None]

NARRATIVE: CASE EVENT DATE: 20150101
